FAERS Safety Report 9030735 (Version 1)
Quarter: 2013Q1

REPORT INFORMATION
  Report Type: Report from Study
  Country: DE (occurrence: DE)
  Receive Date: 20130123
  Receipt Date: 20130123
  Transmission Date: 20140127
  Serious: Yes (Life-Threatening, Hospitalization, Other)
  Sender: FDA-Public Use
  Company Number: DE-ROCHE-1148102

PATIENT
  Age: 51 Year
  Sex: Female
  Weight: 80 kg

DRUGS (13)
  1. TOCILIZUMAB [Suspect]
     Indication: RHEUMATOID ARTHRITIS
     Route: 042
     Dates: start: 20110630
  2. TOCILIZUMAB [Suspect]
     Route: 042
     Dates: start: 20120613
  3. TOCILIZUMAB [Suspect]
     Route: 042
     Dates: start: 20120713
  4. TOCILIZUMAB [Suspect]
     Route: 042
     Dates: start: 20120809
  5. TOCILIZUMAB [Suspect]
     Route: 042
     Dates: start: 20120905
  6. LEFLUNOMID [Suspect]
     Indication: RHEUMATOID ARTHRITIS
     Route: 048
     Dates: start: 20070501
  7. LEFLUNOMID [Suspect]
     Route: 048
     Dates: end: 201211
  8. PREDNISOLON [Concomitant]
     Route: 048
  9. PREDNISOLON [Concomitant]
     Route: 065
  10. PREDNISOLON [Concomitant]
     Route: 065
  11. ISOZID [Concomitant]
     Route: 065
     Dates: start: 20110504, end: 201202
  12. DICLOFENAC [Concomitant]
     Route: 065
     Dates: start: 200705, end: 201212
  13. CELECOXIB [Concomitant]
     Route: 065
     Dates: start: 200705

REACTIONS (6)
  - Cellulitis [Recovered/Resolved]
  - Tooth extraction [Recovered/Resolved]
  - Infection [Recovered/Resolved]
  - Erysipelas [Recovering/Resolving]
  - Erysipelas [Recovering/Resolving]
  - Immunodeficiency [Unknown]
